FAERS Safety Report 18063191 (Version 2)
Quarter: 2020Q3

REPORT INFORMATION
  Report Type: Report from Study
  Country: US (occurrence: US)
  Receive Date: 20200724
  Receipt Date: 20200825
  Transmission Date: 20201103
  Serious: No
  Sender: FDA-Public Use
  Company Number: US-BRISTOL-MYERS SQUIBB COMPANY-BMS-2020-058322

PATIENT
  Age: 73 Year
  Sex: Female
  Weight: 84.37 kg

DRUGS (1)
  1. APIXABAN [Suspect]
     Active Substance: APIXABAN
     Indication: PULMONARY EMBOLISM
     Dosage: 5 MILLIGRAM, BID
     Route: 048
     Dates: start: 202004

REACTIONS (4)
  - Back pain [Unknown]
  - Gingival bleeding [Unknown]
  - Tooth disorder [Unknown]
  - Muscle tightness [Unknown]

NARRATIVE: CASE EVENT DATE: 2020
